FAERS Safety Report 22013552 (Version 1)
Quarter: 2023Q1

REPORT INFORMATION
  Report Type: Spontaneous
  Country: US (occurrence: US)
  Receive Date: 20230220
  Receipt Date: 20230220
  Transmission Date: 20230418
  Serious: Yes (Other)
  Sender: FDA-Public Use
  Company Number: US-STRIDES ARCOLAB LIMITED-2023SP002516

PATIENT

DRUGS (4)
  1. RANITIDINE [Suspect]
     Active Substance: RANITIDINE
     Indication: Product used for unknown indication
     Dosage: UNK? RANITIDINE (OVER THE COUNTER)
     Route: 065
     Dates: start: 1992, end: 2017
  2. RANITIDINE [Suspect]
     Active Substance: RANITIDINE
     Dosage: UNK? RANITIDINE (PRESCRIPTION)
     Route: 065
     Dates: start: 1992, end: 2017
  3. RANITIDINE [Suspect]
     Active Substance: RANITIDINE
     Dosage: UNK? ZANTAC (PRESCRIPTION)
     Route: 065
     Dates: start: 1992, end: 2017
  4. RANITIDINE [Suspect]
     Active Substance: RANITIDINE
     Dosage: UNK?ZANTAC (OVER THE COUNTER)
     Route: 065
     Dates: start: 1992, end: 2017

REACTIONS (1)
  - Hepatic cancer [Unknown]

NARRATIVE: CASE EVENT DATE: 20190601
